FAERS Safety Report 5743856-2 (Version None)
Quarter: 2008Q2

REPORT INFORMATION
  Report Type: 
  Country: None (occurrence: None)
  Receive Date: 20080520
  Receipt Date: 20080509
  Transmission Date: 20081010
  Serious: Yes (Other)
  Sender: FDA-Public Use
  Company Number: ZA-JNJFOC-20080502110

PATIENT
  Sex: Female

DRUGS (2)
  1. TOPAMAX [Suspect]
     Indication: HEADACHE
  2. TOPAMAX [Suspect]
     Indication: MYALGIA

REACTIONS (1)
  - THROMBOPHLEBITIS SUPERFICIAL [None]
